FAERS Safety Report 11748409 (Version 2)
Quarter: 2015Q4

REPORT INFORMATION
  Report Type: Report from Study
  Country: US (occurrence: US)
  Receive Date: 20151117
  Receipt Date: 20151124
  Transmission Date: 20160304
  Serious: Yes (Hospitalization, Other)
  Sender: FDA-Public Use
  Company Number: US-EXELIXIS-CABO-14004847

PATIENT
  Age: 66 Year
  Sex: Male
  Weight: 59 kg

DRUGS (5)
  1. COMETRIQ [Suspect]
     Active Substance: CABOZANTINIB S-MALATE
     Dosage: 60 MG, QD
     Route: 048
     Dates: start: 20151114
  2. NORVASC [Concomitant]
     Active Substance: AMLODIPINE BESYLATE
  3. MICARDIS [Concomitant]
     Active Substance: TELMISARTAN
  4. COMETRIQ [Suspect]
     Active Substance: CABOZANTINIB S-MALATE
     Indication: RENAL CANCER
     Dosage: 60 MG, QD
     Route: 048
     Dates: start: 20141009, end: 201511
  5. GEMZAR [Concomitant]
     Active Substance: GEMCITABINE HYDROCHLORIDE

REACTIONS (22)
  - Haemoglobin decreased [Unknown]
  - Decreased appetite [Unknown]
  - Localised intraabdominal fluid collection [Unknown]
  - Dysphonia [Unknown]
  - Contusion [Recovering/Resolving]
  - Haemorrhage [Unknown]
  - Constipation [Unknown]
  - Dysgeusia [Unknown]
  - Alopecia [Unknown]
  - Ageusia [Not Recovered/Not Resolved]
  - Metastases to lung [Unknown]
  - Dry skin [Unknown]
  - Fatigue [Unknown]
  - Abdominal infection [Unknown]
  - Dyspnoea [Unknown]
  - Aphonia [Not Recovered/Not Resolved]
  - Asthenia [Not Recovered/Not Resolved]
  - Rash [Unknown]
  - Off label use [Unknown]
  - Pulmonary oedema [Unknown]
  - Madarosis [Unknown]
  - Weight decreased [Unknown]

NARRATIVE: CASE EVENT DATE: 201410
